FAERS Safety Report 25489779 (Version 1)
Quarter: 2025Q2

REPORT INFORMATION
  Report Type: Spontaneous
  Country: CN (occurrence: CN)
  Receive Date: 20250627
  Receipt Date: 20250627
  Transmission Date: 20250716
  Serious: Yes (Hospitalization, Other)
  Sender: MERCK SHARP & DOHME LLC
  Company Number: CN-009507513-2298393

PATIENT
  Age: 64 Year
  Sex: Male

DRUGS (3)
  1. PEMBROLIZUMAB [Suspect]
     Active Substance: PEMBROLIZUMAB
     Indication: Non-small cell lung cancer
     Dosage: 200 MG ON D1, WITH A 21-D CYCLE
     Dates: start: 202101, end: 202101
  2. PEMETREXED [Suspect]
     Active Substance: PEMETREXED
     Indication: Non-small cell lung cancer
     Dates: start: 202101, end: 202101
  3. CARBOPLATIN [Suspect]
     Active Substance: CARBOPLATIN
     Indication: Non-small cell lung cancer
     Dosage: 500 MG (AREA UNDER CURVE=5) ON D1, WITH A 21-D CYCLE
     Dates: start: 202101, end: 202101

REACTIONS (6)
  - Immune-mediated cystitis [Recovering/Resolving]
  - Immune-mediated lung disease [Recovering/Resolving]
  - Anal ulcer [Recovered/Resolved]
  - Immune-mediated arthritis [Recovering/Resolving]
  - Aphthous ulcer [Recovered/Resolved]
  - Immune-mediated lung disease [Recovered/Resolved]

NARRATIVE: CASE EVENT DATE: 20210101
